FAERS Safety Report 6583262-4 (Version None)
Quarter: 2010Q1

REPORT INFORMATION
  Report Type: 
  Country: None (occurrence: None)
  Receive Date: 20100216
  Receipt Date: 20100211
  Transmission Date: 20100710
  Serious: Yes (Hospitalization)
  Sender: FDA-Public Use
  Company Number: A0835006A

PATIENT
  Age: 61 Year
  Sex: Female

DRUGS (4)
  1. TYKERB [Suspect]
     Indication: BREAST CANCER
     Dosage: 1250MGD PER DAY
     Route: 048
     Dates: start: 20091101, end: 20091101
  2. BLOOD PRESSURE MEDICATION [Concomitant]
  3. CALCIUM [Concomitant]
  4. IRON [Concomitant]

REACTIONS (7)
  - COLON CANCER [None]
  - FATIGUE [None]
  - INTESTINAL PERFORATION [None]
  - LOSS OF CONSCIOUSNESS [None]
  - MALAISE [None]
  - PERFORMANCE STATUS DECREASED [None]
  - VOMITING [None]
